FAERS Safety Report 16642877 (Version 2)
Quarter: 2019Q3

REPORT INFORMATION
  Report Type: Spontaneous
  Country: US (occurrence: US)
  Receive Date: 20190729
  Receipt Date: 20190909
  Transmission Date: 20191004
  Serious: Yes (Hospitalization, Other)
  Sender: FDA-Public Use
  Company Number: US-PFIZER INC-2019320816

PATIENT
  Age: 68 Year
  Sex: Female
  Weight: 108.84 kg

DRUGS (1)
  1. IBRANCE [Suspect]
     Active Substance: PALBOCICLIB
     Indication: BONE CANCER
     Dosage: 100 MG, CYCLIC (21 DAYS 7 OFF)
     Dates: start: 20190703

REACTIONS (3)
  - Crohn^s disease [Unknown]
  - Product use in unapproved indication [Unknown]
  - Off label use [Unknown]

NARRATIVE: CASE EVENT DATE: 20190703
